FAERS Safety Report 7085830-2 (Version None)
Quarter: 2010Q4

REPORT INFORMATION
  Report Type: 
  Country: None (occurrence: None)
  Receive Date: 20101105
  Receipt Date: 20101026
  Transmission Date: 20110411
  Serious: Yes (Other)
  Sender: FDA-Public Use
  Company Number: US-ROCHE-737121

PATIENT
  Sex: Female

DRUGS (3)
  1. IBANDRONIC ACID [Suspect]
     Indication: OSTEOPOROSIS
     Route: 065
  2. CLIMARA [Concomitant]
  3. PROMETRIUM [Concomitant]

REACTIONS (1)
  - STRESS FRACTURE [None]
